FAERS Safety Report 9107692 (Version 2)
Quarter: 2013Q1

REPORT INFORMATION
  Report Type: Spontaneous
  Country: FI (occurrence: FI)
  Receive Date: 20130221
  Receipt Date: 20130308
  Transmission Date: 20140127
  Serious: Yes (Other)
  Sender: FDA-Public Use
  Company Number: FI-ROCHE-1193262

PATIENT
  Sex: Female

DRUGS (5)
  1. MABTHERA [Suspect]
     Indication: RHEUMATOID ARTHRITIS
     Route: 042
     Dates: start: 200808
  2. CORTISONE [Concomitant]
     Indication: RHEUMATOID ARTHRITIS
     Route: 065
  3. CYCLOPHOSPHAMIDE [Concomitant]
  4. EPIRUBICIN [Concomitant]
  5. 5-FLUOROURACIL [Concomitant]

REACTIONS (1)
  - Breast cancer [Unknown]
